FAERS Safety Report 12685091 (Version 15)
Quarter: 2018Q1

REPORT INFORMATION
  Report Type: Report from Study
  Country: BR (occurrence: BR)
  Receive Date: 20160825
  Receipt Date: 20180307
  Transmission Date: 20180508
  Serious: Yes (Other)
  Sender: FDA-Public Use
  Company Number: PHHY2016BR116752

PATIENT
  Sex: Female
  Weight: 80 kg

DRUGS (10)
  1. SANDOSTATIN LAR DEPOT [Suspect]
     Active Substance: OCTREOTIDE ACETATE
     Dosage: 30 MG, (EVERY 45 DAYS)
     Route: 030
     Dates: start: 2011
  2. LOSARTAN. [Concomitant]
     Active Substance: LOSARTAN
     Indication: HYPERTENSION
     Dosage: 2 DF, QD
     Route: 048
     Dates: start: 2013
  3. SANDOSTATIN LAR DEPOT [Suspect]
     Active Substance: OCTREOTIDE ACETATE
     Dosage: 30 MG, Q2MO (EVERY OTHER MONTH)
     Route: 065
     Dates: start: 20160819
  4. SANDOSTATIN LAR DEPOT [Suspect]
     Active Substance: OCTREOTIDE ACETATE
     Dosage: 60 MG, QMO
     Route: 030
     Dates: end: 201801
  5. TAPAZOL [Concomitant]
     Indication: THYROID DISORDER
     Dosage: 1 DF, QD
     Route: 048
     Dates: start: 2009
  6. SANDOSTATIN LAR DEPOT [Suspect]
     Active Substance: OCTREOTIDE ACETATE
     Dosage: 20 MG, Q2MO, EVERY OTHER MONTH
     Route: 065
     Dates: start: 2011
  7. SANDOSTATIN LAR DEPOT [Suspect]
     Active Substance: OCTREOTIDE ACETATE
     Dosage: 20 MG, OT
     Route: 065
  8. SANDOSTATIN LAR DEPOT [Suspect]
     Active Substance: OCTREOTIDE ACETATE
     Indication: ACROMEGALY
     Dosage: 30 MG, QMO
     Route: 065
     Dates: start: 2009
  9. TAPAZOL [Concomitant]
     Indication: GASTRIC DISORDER
  10. AMLODIPINE [Concomitant]
     Active Substance: AMLODIPINE BESYLATE
     Indication: HYPERTENSION
     Dosage: 1 DF, QD
     Route: 048
     Dates: start: 2013

REACTIONS (35)
  - Hormone level abnormal [Unknown]
  - Thyroid mass [Unknown]
  - General physical condition abnormal [Unknown]
  - Rheumatic disorder [Unknown]
  - Weight decreased [Unknown]
  - Goitre [Unknown]
  - Knee deformity [Unknown]
  - Malaise [Unknown]
  - Dysstasia [Unknown]
  - Product use issue [Unknown]
  - Gait disturbance [Recovering/Resolving]
  - Hypertension [Unknown]
  - Bone pain [Unknown]
  - Musculoskeletal stiffness [Unknown]
  - Spinal disorder [Unknown]
  - Abdominal discomfort [Unknown]
  - Head discomfort [Unknown]
  - Body height decreased [Unknown]
  - Arthropathy [Unknown]
  - Constipation [Unknown]
  - Inappropriate schedule of drug administration [Unknown]
  - Bone disorder [Unknown]
  - Nodule [Unknown]
  - Pain [Recovering/Resolving]
  - Blood pressure fluctuation [Unknown]
  - Memory impairment [Unknown]
  - Swelling [Unknown]
  - Pain in extremity [Unknown]
  - Arthritis [Recovering/Resolving]
  - Flavivirus infection [Unknown]
  - Dizziness [Unknown]
  - Arthralgia [Unknown]
  - Osteoarthritis [Unknown]
  - Headache [Unknown]
  - Spinal pain [Unknown]

NARRATIVE: CASE EVENT DATE: 2010
